FAERS Safety Report 16663161 (Version 1)
Quarter: 2019Q3

REPORT INFORMATION
  Report Type: Report from Study
  Country: US (occurrence: US)
  Receive Date: 20190802
  Receipt Date: 20190802
  Transmission Date: 20191004
  Serious: No
  Sender: FDA-Public Use
  Company Number: US-EXELIXIS-CABO-19021504

PATIENT
  Sex: Male

DRUGS (18)
  1. RESTORIL [Concomitant]
     Active Substance: TEMAZEPAM
  2. OXYCONTIN [Concomitant]
     Active Substance: OXYCODONE HYDROCHLORIDE
  3. NORVASC [Concomitant]
     Active Substance: AMLODIPINE BESYLATE
  4. DIOVAN [Concomitant]
     Active Substance: VALSARTAN
  5. BOOST [Concomitant]
     Active Substance: DIETARY SUPPLEMENT
  6. ZANAFLEX [Concomitant]
     Active Substance: TIZANIDINE HYDROCHLORIDE
  7. HYZAAR [Concomitant]
     Active Substance: HYDROCHLOROTHIAZIDE\LOSARTAN POTASSIUM
  8. CABOMETYX [Suspect]
     Active Substance: CABOZANTINIB S-MALATE
     Indication: RENAL CANCER
     Dosage: 60 MG, QD
     Route: 048
     Dates: start: 20181101
  9. ROXICODONE [Concomitant]
     Active Substance: OXYCODONE HYDROCHLORIDE
  10. PHENERGAN [Concomitant]
     Active Substance: PROMETHAZINE HYDROCHLORIDE
  11. VOTRIENT [Concomitant]
     Active Substance: PAZOPANIB HYDROCHLORIDE
  12. HYDRALAZINE HCL [Concomitant]
     Active Substance: HYDRALAZINE HYDROCHLORIDE
  13. BYSTOLIC [Concomitant]
     Active Substance: NEBIVOLOL HYDROCHLORIDE
  14. ASPIRIN 81 [Concomitant]
     Active Substance: ASPIRIN
  15. GLUCOTROL [Concomitant]
     Active Substance: GLIPIZIDE
  16. EMBEDA [Concomitant]
     Active Substance: MORPHINE SULFATE\NALTREXONE HYDROCHLORIDE
  17. HYDROCODONE/HOMATROPINE [Concomitant]
     Active Substance: HOMATROPINE METHYLBROMIDE\HYDROCODONE BITARTRATE
  18. FISH OIL [Concomitant]
     Active Substance: FISH OIL

REACTIONS (1)
  - Tooth disorder [Not Recovered/Not Resolved]
